FAERS Safety Report 19570571 (Version 1)
Quarter: 2021Q3

REPORT INFORMATION
  Report Type: Spontaneous
  Country: CA (occurrence: CA)
  Receive Date: 20210716
  Receipt Date: 20210716
  Transmission Date: 20211014
  Serious: Yes (Hospitalization, Other)
  Sender: FDA-Public Use
  Company Number: ALC2021CA004153

PATIENT
  Age: 11 Year
  Sex: Male

DRUGS (32)
  1. CLONIDINE. [Suspect]
     Active Substance: CLONIDINE
     Indication: PRODUCT USED FOR UNKNOWN INDICATION
     Dosage: 0.05 MILLIGRAM, 1 EVERY 1 DAYS
     Route: 048
  2. GABAPENTIN. [Suspect]
     Active Substance: GABAPENTIN
     Indication: PAIN MANAGEMENT
     Dosage: 600.0 MILLIGRAM, 3 EVERY 1 DAYS
     Route: 048
  3. HYDROMORPHONE HYDROCHLORIDE. [Suspect]
     Active Substance: HYDROMORPHONE HYDROCHLORIDE
     Indication: PAIN MANAGEMENT
     Dosage: UNK
     Route: 065
  4. PHENOBARBITAL. [Suspect]
     Active Substance: PHENOBARBITAL
     Indication: PRODUCT USED FOR UNKNOWN INDICATION
     Dosage: 30.0 MILLIGRAM, 2 EVERY 1 DAYS
     Route: 048
  5. POLYETHYLENE GLYCOL [Suspect]
     Active Substance: POLYETHYLENE GLYCOLS
     Indication: PRODUCT USED FOR UNKNOWN INDICATION
     Dosage: 30.0 MILLIGRAM, 2 EVERY 1 DAYS
     Route: 048
  6. FISH OIL, DHA, EPA [Suspect]
     Active Substance: DOCONEXENT\ICOSAPENT\OMEGA-3 FATTY ACIDS
     Dosage: UNK, 1 EVERY 1 DAYS
     Route: 048
  7. DIMENHYDRINATE. [Suspect]
     Active Substance: DIMENHYDRINATE
     Indication: CONSTIPATION
     Dosage: 25.0 MILLIGRAM, 1 EVERY 1 DAYS
     Route: 048
  8. LORAZEPAM. [Suspect]
     Active Substance: LORAZEPAM
     Indication: PAIN MANAGEMENT
     Dosage: 2.0 MILLIGRAM
     Route: 060
  9. LORAZEPAM. [Suspect]
     Active Substance: LORAZEPAM
     Indication: MUSCLE SPASMS
     Dosage: 0.5 MILLIGRAM
     Route: 060
  10. MELATONIN [Suspect]
     Active Substance: MELATONIN
     Indication: SLEEP DEFICIT
     Dosage: 10.0 MILLIGRAM, 1 EVERY 1 DAYS
     Route: 048
  11. RANITIDINE HYDROCHLORIDE. [Suspect]
     Active Substance: RANITIDINE HYDROCHLORIDE
     Indication: PRODUCT USED FOR UNKNOWN INDICATION
     Dosage: 150.0 MILLIGRAM, 1 EVERY 1 DAYS
     Route: 048
  12. KETOROLAC [Suspect]
     Active Substance: KETOROLAC TROMETHAMINE
     Indication: PAIN
     Dosage: 20.0 MILLIGRAM, 4 EVERY 1 DAYS
     Route: 048
  13. PANTOPRAZOLE [Suspect]
     Active Substance: PANTOPRAZOLE
     Indication: PRODUCT USED FOR UNKNOWN INDICATION
     Dosage: 40.0 MILLIGRAM, 1 EVERY 1 DAYS
     Route: 048
  14. CLOBAZAM. [Suspect]
     Active Substance: CLOBAZAM
     Indication: PRODUCT USED FOR UNKNOWN INDICATION
     Dosage: 20.0 MILLIGRAM, 2 EVERY 1 DAYS
     Route: 048
  15. FLUOXETINE HYDROCHLORIDE. [Suspect]
     Active Substance: FLUOXETINE HYDROCHLORIDE
     Indication: PRODUCT USED FOR UNKNOWN INDICATION
     Dosage: 20.0 MILLIGRAM, 1 EVERY 1 DAYS
     Route: 048
  16. LORAZEPAM. [Suspect]
     Active Substance: LORAZEPAM
     Indication: SEIZURE
     Dosage: UNK
     Route: 065
  17. VITAMIN D3 [Suspect]
     Active Substance: CHOLECALCIFEROL
     Indication: PRODUCT USED FOR UNKNOWN INDICATION
     Dosage: 200.0 IU (INTERNATIONAL UNIT), 1 EVERY 1 DAYS
     Route: 048
  18. BACLOFEN. [Suspect]
     Active Substance: BACLOFEN
     Indication: PRODUCT USED FOR UNKNOWN INDICATION
     Dosage: 20.0 MILLIGRAM, 3 EVERY 1 DAYS
     Route: 048
  19. CELECOXIB. [Suspect]
     Active Substance: CELECOXIB
     Indication: PAIN MANAGEMENT
     Dosage: 100.0 MILLIGRAM, 2 EVERY 1 DAYS
     Route: 048
  20. METHADONE [Suspect]
     Active Substance: METHADONE HYDROCHLORIDE
     Indication: PRODUCT USED FOR UNKNOWN INDICATION
     Dosage: 2.0 MILLIGRAM, 3 EVERY 1 DAYS
     Route: 048
  21. METHOCARBAMOL/ACETAMINOPHEN [Suspect]
     Active Substance: ACETAMINOPHEN\METHOCARBAMOL
     Indication: PRODUCT USED FOR UNKNOWN INDICATION
     Dosage: UNK, 2 EVERY 1 DAYS
     Route: 048
  22. ARIPIPRAZOLE. [Suspect]
     Active Substance: ARIPIPRAZOLE
     Indication: PRODUCT USED FOR UNKNOWN INDICATION
     Dosage: 2.0 MILLIGRAM, 3 EVERY 1 DAYS
     Route: 048
  23. BISACODYL. [Suspect]
     Active Substance: BISACODYL
     Indication: PRODUCT USED FOR UNKNOWN INDICATION
     Dosage: 5.0 MILLIGRAM, 1 EVERY 1 DAYS
     Route: 048
  24. HYDROXYCHLOROQUINE SULFATE. [Suspect]
     Active Substance: HYDROXYCHLOROQUINE SULFATE
     Indication: PRODUCT USED FOR UNKNOWN INDICATION
     Dosage: 400.0 MILLIGRAM, 1 EVERY 1 DAYS
     Route: 048
  25. LEUPRORELIN [Suspect]
     Active Substance: LEUPROLIDE ACETATE
     Indication: PRODUCT USED FOR UNKNOWN INDICATION
     Dosage: 7.5 MILLIGRAM, 1 EVERY 1 MONTHS
     Route: 030
  26. DIPHENHYDRAMINE. [Suspect]
     Active Substance: DIPHENHYDRAMINE
     Indication: PRURITUS
     Dosage: 12.5 MILLIGRAM, 4 EVERY 1 DAYS
     Route: 048
  27. FLUTICASONE. [Suspect]
     Active Substance: FLUTICASONE
     Indication: PRODUCT USED FOR UNKNOWN INDICATION
     Dosage: 250.0 MICROGRAM, 1 EVERY 1 DAYS
     Route: 048
  28. METHOCARBAMOL. [Suspect]
     Active Substance: METHOCARBAMOL
     Indication: PRODUCT USED FOR UNKNOWN INDICATION
     Dosage: UNK
     Route: 065
  29. SALBUTAMOL [Suspect]
     Active Substance: ALBUTEROL
     Indication: PRODUCT USED FOR UNKNOWN INDICATION
     Dosage: 100.0 MICROGRAM
     Route: 065
  30. CLONIDINE. [Suspect]
     Active Substance: CLONIDINE
     Dosage: 0.1 MILLIGRAM
     Route: 048
  31. MONTELUKAST [Suspect]
     Active Substance: MONTELUKAST SODIUM
     Indication: PRODUCT USED FOR UNKNOWN INDICATION
     Dosage: 10.0 MILLIGRAM, 1 EVERY 1 DAYS
     Route: 048
  32. VITAMIN C ASCORBIC ACID [Suspect]
     Active Substance: ASCORBIC ACID
     Indication: PRODUCT USED FOR UNKNOWN INDICATION
     Dosage: 1500.0 MILLIGRAM, 1 EVERY 1 DAYS
     Route: 048

REACTIONS (7)
  - Respiratory depression [Recovered/Resolved]
  - Drug dependence [Recovered/Resolved]
  - Product use issue [Recovered/Resolved]
  - Drug abuse [Recovered/Resolved]
  - Drug ineffective [Recovered/Resolved]
  - Off label use [Recovered/Resolved]
  - Product prescribing error [Recovered/Resolved]
